FAERS Safety Report 21916063 (Version 1)
Quarter: 2023Q1

REPORT INFORMATION
  Report Type: Spontaneous
  Country: US (occurrence: None)
  Receive Date: 20230125
  Receipt Date: 20230125
  Transmission Date: 20230417
  Serious: No
  Sender: FDA-Public Use
  Company Number: None

PATIENT
  Sex: Female

DRUGS (1)
  1. ENBREL [Suspect]
     Active Substance: ETANERCEPT
     Indication: Ankylosing spondylitis
     Dosage: OTHER FREQUENCY : OTHER;?
     Route: 058
     Dates: start: 202202

REACTIONS (3)
  - Joint swelling [None]
  - Sleep disorder [None]
  - Hot flush [None]
